FAERS Safety Report 24965419 (Version 1)
Quarter: 2025Q1

REPORT INFORMATION
  Report Type: Spontaneous
  Country: US (occurrence: None)
  Receive Date: 20250213
  Receipt Date: 20250213
  Transmission Date: 20250408
  Serious: No
  Sender: FDA-CTU
  Company Number: None

PATIENT
  Age: 58 Year
  Sex: Female

DRUGS (1)
  1. AMBRISENTAN [Suspect]
     Active Substance: AMBRISENTAN
     Indication: Systemic scleroderma
     Dosage: FREQUENCY : DAILY;?
     Route: 048

REACTIONS (2)
  - Pulmonary fibrosis [None]
  - Off label use [None]
